FAERS Safety Report 9912609 (Version 1)
Quarter: 2014Q1

REPORT INFORMATION
  Report Type: Report from Study
  Country: SE (occurrence: SE)
  Receive Date: 20140220
  Receipt Date: 20140220
  Transmission Date: 20141002
  Serious: Yes (Life-Threatening, Hospitalization, Other)
  Sender: FDA-Public Use
  Company Number: SE-AMGEN-SWECT2014011116

PATIENT
  Age: 61 Year
  Sex: Female

DRUGS (2)
  1. ETANERCEPT [Suspect]
     Indication: RHEUMATOID ARTHRITIS
     Dosage: 50 MG, QWK
     Route: 065
     Dates: start: 20070212, end: 20080115
  2. PREDNISOLONE [Concomitant]
     Dosage: 5 MG, UNK
     Route: 048

REACTIONS (1)
  - Respiratory tract neoplasm [Recovering/Resolving]
